FAERS Safety Report 25760685 (Version 1)
Quarter: 2025Q3

REPORT INFORMATION
  Report Type: Spontaneous
  Country: US (occurrence: None)
  Receive Date: 20250903
  Receipt Date: 20250903
  Transmission Date: 20251021
  Serious: Yes (Hospitalization)
  Sender: FDA-CTU
  Company Number: None

PATIENT
  Age: 86 Year
  Sex: Female

DRUGS (3)
  1. NITROFURANTOIN MONOHYDRATE [Suspect]
     Active Substance: NITROFURANTOIN MONOHYDRATE
     Dosage: 100MG EVERY 12 HOURS
  2. OFEV [Suspect]
     Active Substance: NINTEDANIB
     Dosage: FREQUENCY : EVERY 12 HOURS?
  3. LOPERAMIDE [Suspect]
     Active Substance: LOPERAMIDE

REACTIONS (4)
  - Interstitial lung disease [None]
  - Diarrhoea [None]
  - Constipation [None]
  - Therapy change [None]
